FAERS Safety Report 4666217-6 (Version None)
Quarter: 2005Q2

REPORT INFORMATION
  Report Type: 
  Country: None (occurrence: None)
  Receive Date: 20050517
  Receipt Date: 20050517
  Transmission Date: 20051028
  Serious: Yes (Hospitalization, Disabling)
  Sender: FDA-Public Use
  Company Number: None

PATIENT
  Sex: Female

DRUGS (2)
  1. TEGRETOL [Suspect]
     Indication: CONVULSION
     Dosage: 100MG     ONE PO TID
     Route: 048
  2. TEGRETOL [Suspect]
     Indication: CONVULSION
     Dosage: 100MG   ONCE P.O. TID
     Route: 048

REACTIONS (2)
  - CONVULSION [None]
  - DRUG LEVEL CHANGED [None]
